FAERS Safety Report 9600964 (Version 1)
Quarter: 2013Q4

REPORT INFORMATION
  Report Type: Spontaneous
  Country: US (occurrence: US)
  Receive Date: 20131004
  Receipt Date: 20131004
  Transmission Date: 20140711
  Serious: No
  Sender: FDA-Public Use
  Company Number: US-AMGEN-USASP2013037967

PATIENT
  Age: 43 Year
  Sex: Female

DRUGS (3)
  1. ENBREL [Suspect]
     Indication: RHEUMATOID ARTHRITIS
     Dosage: 50 MG, QWK
     Route: 065
     Dates: start: 20130522
  2. METHOTREXATE [Concomitant]
     Dosage: UNK MG, QWK
     Dates: start: 201210
  3. PREDNISONE [Concomitant]
     Dosage: 6 MG, QD
     Route: 048
     Dates: start: 201209

REACTIONS (4)
  - Pruritus [Not Recovered/Not Resolved]
  - Blood glucose increased [Not Recovered/Not Resolved]
  - Feeling abnormal [Not Recovered/Not Resolved]
  - Vulvovaginal mycotic infection [Not Recovered/Not Resolved]
